FAERS Safety Report 6193774-3 (Version None)
Quarter: 2009Q2

REPORT INFORMATION
  Report Type: 
  Country: None (occurrence: None)
  Receive Date: 20090518
  Receipt Date: 20090508
  Transmission Date: 20091009
  Serious: Yes (Hospitalization, Other)
  Sender: FDA-Public Use
  Company Number: US-ABBOTT-09P-163-0572187-00

PATIENT
  Sex: Female
  Weight: 2.254 kg

DRUGS (4)
  1. KALETRA [Suspect]
     Indication: DRUG EXPOSURE DURING PREGNANCY
     Route: 064
  2. COMBIVIR [Suspect]
     Indication: DRUG EXPOSURE DURING PREGNANCY
     Route: 064
  3. INTRAVENOUS FLUIDS [Concomitant]
     Indication: DRUG USE FOR UNKNOWN INDICATION
     Route: 042
  4. SIMILAC [Concomitant]
     Indication: NUTRITIONAL SUPPORT
     Dosage: 20 CAL AD LIB
     Route: 048

REACTIONS (8)
  - CYANOSIS [None]
  - DRUG EXPOSURE DURING PREGNANCY [None]
  - HEART RATE DECREASED [None]
  - HYPOTONIA [None]
  - NORMAL NEWBORN [None]
  - PREMATURE BABY [None]
  - RESPIRATION ABNORMAL [None]
  - SHIFT TO THE LEFT [None]
